FAERS Safety Report 6422313-4 (Version None)
Quarter: 2009Q4

REPORT INFORMATION
  Report Type: 
  Country: None (occurrence: None)
  Receive Date: 20091030
  Receipt Date: 20091029
  Transmission Date: 20100525
  Serious: Yes (Other)
  Sender: FDA-Public Use
  Company Number: ES-ROXANE LABORATORIES, INC.-2009-RO-01110RO

PATIENT
  Age: 46 Year
  Sex: Male

DRUGS (6)
  1. LIDOCAINE [Suspect]
     Indication: LOCAL ANAESTHESIA
  2. LIDOCAINE [Suspect]
  3. CEFTRIAXONE [Suspect]
     Indication: PNEUMONIA
  4. AZITHROMYCIN [Suspect]
     Indication: PNEUMONIA
  5. MEPIVACAINE HCL [Concomitant]
     Indication: LOCAL ANAESTHESIA
     Route: 058
  6. MEPIVACAINE HCL [Concomitant]
     Route: 058

REACTIONS (4)
  - ATAXIA [None]
  - CEREBELLAR SYNDROME [None]
  - DIPLOPIA [None]
  - DYSARTHRIA [None]
